FAERS Safety Report 11427608 (Version 7)
Quarter: 2016Q2

REPORT INFORMATION
  Report Type: Report from Study
  Country: US (occurrence: US)
  Receive Date: 20150827
  Receipt Date: 20160622
  Transmission Date: 20160815
  Serious: No
  Sender: FDA-Public Use
  Company Number: PHEH2015US016612

PATIENT
  Age: 48 Year
  Sex: Female
  Weight: 61.68 kg

DRUGS (2)
  1. GILENYA [Suspect]
     Active Substance: FINGOLIMOD HYDROCHLORIDE
     Dosage: 0.5 MG, QD
     Route: 048
     Dates: start: 20150820, end: 201512
  2. GILENYA [Suspect]
     Active Substance: FINGOLIMOD HYDROCHLORIDE
     Indication: RELAPSING-REMITTING MULTIPLE SCLEROSIS
     Dosage: UNK
     Route: 048

REACTIONS (14)
  - Pain in extremity [Unknown]
  - Gastroenteritis viral [Unknown]
  - Abdominal discomfort [Unknown]
  - Helicobacter infection [Unknown]
  - Arthralgia [Unknown]
  - Toxicity to various agents [Unknown]
  - Abdominal pain upper [Unknown]
  - Cough [Unknown]
  - Fatigue [Unknown]
  - Musculoskeletal pain [Unknown]
  - Weight increased [Unknown]
  - Gastric ulcer [Unknown]
  - Sensory disturbance [Unknown]
  - Concomitant disease aggravated [Unknown]

NARRATIVE: CASE EVENT DATE: 20150112
